FAERS Safety Report 11423265 (Version 1)
Quarter: 2015Q3

REPORT INFORMATION
  Report Type: Report from Study
  Country: US (occurrence: US)
  Receive Date: 20150827
  Receipt Date: 20150827
  Transmission Date: 20151125
  Serious: Yes (Other)
  Sender: FDA-Public Use
  Company Number: PHEH2015US013144

PATIENT
  Sex: Female
  Weight: 45.35 kg

DRUGS (2)
  1. GILENYA [Suspect]
     Active Substance: FINGOLIMOD HYDROCHLORIDE
     Indication: MULTIPLE SCLEROSIS
     Dosage: 0.5 MG, QD, (STOPPED 2 MONTHS AGO)
     Route: 048
     Dates: start: 20150226
  2. REQUIP [Suspect]
     Active Substance: ROPINIROLE HYDROCHLORIDE
     Indication: TREMOR
     Dosage: UNK
     Route: 065

REACTIONS (4)
  - Hypokinesia [Unknown]
  - Tremor [Unknown]
  - Breast tenderness [Unknown]
  - Systemic candida [Unknown]
